FAERS Safety Report 21639780 (Version 1)
Quarter: 2022Q4

REPORT INFORMATION
  Report Type: Spontaneous
  Country: FR (occurrence: None)
  Receive Date: 20221124
  Receipt Date: 20221124
  Transmission Date: 20230112
  Serious: Yes (Hospitalization)
  Sender: FDA-Public Use
  Company Number: 2022A382613

PATIENT
  Age: 76 Year
  Sex: Female
  Weight: 58 kg

DRUGS (5)
  1. SYMBICORT [Suspect]
     Active Substance: BUDESONIDE\FORMOTEROL FUMARATE DIHYDRATE
     Indication: Chronic obstructive pulmonary disease
     Dosage: 160/4.5 UG PER DOSE, TWO INHALATIONS IN THE MORNING
     Route: 055
  2. SYMBICORT [Suspect]
     Active Substance: BUDESONIDE\FORMOTEROL FUMARATE DIHYDRATE
     Indication: Asthma
     Dosage: 160/4.5 UG PER DOSE, TWO INHALATIONS IN THE MORNING
     Route: 055
  3. CRESTOR [Suspect]
     Active Substance: ROSUVASTATIN CALCIUM
     Indication: Hypercholesterolaemia
     Route: 048
  4. VENTOLIN [Concomitant]
     Active Substance: ALBUTEROL SULFATE
     Indication: Bronchial disorder
  5. LEVOTHYROXINE [Concomitant]
     Active Substance: LEVOTHYROXINE
     Dosage: ONE IN THE MORNING WHILE EATING

REACTIONS (25)
  - Abdominal rigidity [Unknown]
  - Respiratory tract infection [Unknown]
  - Sputum discoloured [Unknown]
  - Chills [Unknown]
  - Blood pressure increased [Unknown]
  - Dyspnoea [Unknown]
  - Vertigo [Unknown]
  - Bronchitis [Unknown]
  - Bronchiolitis [Unknown]
  - Rhinorrhoea [Unknown]
  - Insomnia [Unknown]
  - Throat irritation [Unknown]
  - Lymphocyte count increased [Unknown]
  - Gamma-glutamyltransferase increased [Unknown]
  - Blood glucose increased [Unknown]
  - Glaucoma [Unknown]
  - Drug ineffective [Unknown]
  - Cough [Unknown]
  - Pneumonia [Unknown]
  - Lung disorder [Unknown]
  - Tissue injury [Unknown]
  - Haemoglobin decreased [Unknown]
  - Platelet count decreased [Unknown]
  - Sputum abnormal [Unknown]
  - Haemoptysis [Unknown]

NARRATIVE: CASE EVENT DATE: 20221116
